FAERS Safety Report 5509480-1 (Version None)
Quarter: 2007Q4

REPORT INFORMATION
  Report Type: 
  Country: None (occurrence: None)
  Receive Date: 20071107
  Receipt Date: 20071026
  Transmission Date: 20080405
  Serious: Yes (Other)
  Sender: FDA-Public Use
  Company Number: GB-PFIZER INC-2007075698

PATIENT
  Sex: Male
  Weight: 101 kg

DRUGS (4)
  1. CHAMPIX [Suspect]
     Indication: EX-SMOKER
     Route: 048
  2. DOMPERIDONE [Concomitant]
     Route: 048
  3. PERINDOPRIL [Concomitant]
     Route: 048
  4. TEMAZEPAM [Concomitant]
     Route: 048

REACTIONS (2)
  - MOOD ALTERED [None]
  - PERSONALITY CHANGE [None]
